FAERS Safety Report 5215172-9 (Version None)
Quarter: 2007Q1

REPORT INFORMATION
  Report Type: 
  Country: None (occurrence: None)
  Receive Date: 20061108
  Receipt Date: 20060607
  Transmission Date: 20070707
  Serious: Yes (Other)
  Sender: FDA-Public Use
  Company Number: US200606001707

PATIENT
  Age: 43 Year
  Sex: Female

DRUGS (4)
  1. PROZAC [Suspect]
     Indication: DRUG USE FOR UNKNOWN INDICATION
     Dosage: OTHER, ORAL; SEE IMAGE
     Route: 048
     Dates: start: 20060101
  2. PROZAC [Suspect]
     Indication: DRUG USE FOR UNKNOWN INDICATION
     Dosage: OTHER, ORAL; SEE IMAGE
     Route: 048
     Dates: start: 20060501
  3. ESZOPICLONE (ESZOPICLONE) [Concomitant]
  4. EFFEXOR [Concomitant]

REACTIONS (4)
  - DYSARTHRIA [None]
  - OVERDOSE [None]
  - SUICIDAL IDEATION [None]
  - SUICIDE ATTEMPT [None]
